FAERS Safety Report 6382311-6 (Version None)
Quarter: 2009Q3

REPORT INFORMATION
  Report Type: 
  Country: None (occurrence: None)
  Receive Date: 20090928
  Receipt Date: 20090928
  Transmission Date: 20100115
  Serious: Yes (Other)
  Sender: FDA-Public Use
  Company Number: None

PATIENT
  Sex: Male
  Weight: 92.8 kg

DRUGS (2)
  1. CEFAZOLIN [Suspect]
     Indication: PREOPERATIVE CARE
     Dosage: 2 GM X1 IV
     Route: 042
     Dates: start: 20090915
  2. CEFAZOLIN [Suspect]
     Dosage: 1 GM Q8H IV
     Route: 042
     Dates: start: 20090915, end: 20090917

REACTIONS (1)
  - THROMBOCYTOPENIA [None]
